FAERS Safety Report 6249515-4 (Version None)
Quarter: 2009Q2

REPORT INFORMATION
  Report Type: 
  Country: None (occurrence: None)
  Receive Date: 20090629
  Receipt Date: 20090623
  Transmission Date: 20091009
  Serious: Yes (Other)
  Sender: FDA-Public Use
  Company Number: B0580247A

PATIENT
  Sex: Male

DRUGS (5)
  1. KIVEXA [Suspect]
     Indication: HIV INFECTION
     Route: 048
     Dates: start: 20051127
  2. VALACYCLOVIR HCL [Suspect]
     Indication: HERPES VIRUS INFECTION
     Route: 048
     Dates: start: 20000101
  3. REYATAZ [Suspect]
     Indication: HIV INFECTION
     Dosage: 150MG TWICE PER DAY
     Route: 048
     Dates: start: 20051127
  4. NORVIR [Suspect]
     Indication: HIV INFECTION
     Dosage: 100MG PER DAY
     Route: 048
     Dates: start: 20051127
  5. FENOFIBRATE [Concomitant]
     Indication: DRUG USE FOR UNKNOWN INDICATION
     Route: 048

REACTIONS (2)
  - NEUROPATHY PERIPHERAL [None]
  - SENSORY DISTURBANCE [None]
